FAERS Safety Report 9774563 (Version 1)
Quarter: 2013Q4

REPORT INFORMATION
  Report Type: Spontaneous
  Country: FR (occurrence: FR)
  Receive Date: 20131220
  Receipt Date: 20131220
  Transmission Date: 20140711
  Serious: Yes (Other)
  Sender: FDA-Public Use
  Company Number: FR-ASTRAZENECA-2013SE91385

PATIENT
  Age: 15240 Day
  Sex: Female

DRUGS (7)
  1. XEROQUEL [Suspect]
     Indication: BIPOLAR DISORDER
     Route: 048
     Dates: start: 201311
  2. XEROQUEL [Suspect]
     Indication: BIPOLAR DISORDER
     Route: 048
  3. XEROQUEL [Suspect]
     Indication: BIPOLAR DISORDER
     Route: 048
     Dates: end: 20131212
  4. XEROQUEL [Suspect]
     Indication: BIPOLAR DISORDER
     Route: 048
     Dates: start: 20131213
  5. LYSANXIA [Concomitant]
     Indication: ANXIETY
     Route: 048
     Dates: start: 2011
  6. CERIS [Concomitant]
     Indication: URINARY INCONTINENCE
     Route: 048
     Dates: start: 20131205
  7. LEVOTHYROX [Concomitant]
     Indication: HYPOTHYROIDISM
     Route: 048
     Dates: start: 2004

REACTIONS (1)
  - Haematochezia [Not Recovered/Not Resolved]
